FAERS Safety Report 6565168-X (Version None)
Quarter: 2010Q1

REPORT INFORMATION
  Report Type: 
  Country: None (occurrence: None)
  Receive Date: 20100201
  Receipt Date: 20100201
  Transmission Date: 20100710
  Serious: Yes (Hospitalization)
  Sender: FDA-Public Use
  Company Number: B0629310A

PATIENT
  Sex: Male

DRUGS (3)
  1. AUGMENTIN '125' [Suspect]
     Indication: SINUSITIS
     Dosage: 2UNIT THREE TIMES PER DAY
     Route: 048
     Dates: start: 20091201, end: 20091211
  2. CEFPODOXIME PROXETIL [Suspect]
     Indication: SINUSITIS
     Dosage: 2UNIT TWICE PER DAY
     Route: 048
     Dates: start: 20091125, end: 20091201
  3. SOLUPRED [Suspect]
     Indication: SINUSITIS
     Dosage: 60MG PER DAY
     Route: 048
     Dates: start: 20091125, end: 20091203

REACTIONS (9)
  - ALANINE AMINOTRANSFERASE INCREASED [None]
  - ASPARTATE AMINOTRANSFERASE INCREASED [None]
  - BLOOD ALKALINE PHOSPHATASE INCREASED [None]
  - BLOOD BILIRUBIN INCREASED [None]
  - GAMMA-GLUTAMYLTRANSFERASE INCREASED [None]
  - HEPATOCELLULAR INJURY [None]
  - JAUNDICE CHOLESTATIC [None]
  - NAUSEA [None]
  - VOMITING [None]
